FAERS Safety Report 12781094 (Version 1)
Quarter: 2016Q3

REPORT INFORMATION
  Report Type: Spontaneous
  Country: KR (occurrence: KR)
  Receive Date: 20160926
  Receipt Date: 20160926
  Transmission Date: 20161109
  Serious: Yes (Other)
  Sender: FDA-Public Use
  Company Number: KR-HQ SPECIALTY-KR-2016INT000882

PATIENT
  Age: 63 Year
  Sex: Female

DRUGS (3)
  1. PACLITAXEL. [Suspect]
     Active Substance: PACLITAXEL
     Indication: CERVIX CARCINOMA STAGE II
     Dosage: UNK
     Route: 065
  2. IFOSFAMIDE. [Suspect]
     Active Substance: IFOSFAMIDE
     Indication: CERVIX CARCINOMA STAGE II
     Dosage: UNK
  3. CISPLATIN. [Suspect]
     Active Substance: CISPLATIN
     Indication: CERVIX CARCINOMA STAGE II
     Dosage: UNK

REACTIONS (4)
  - Neutropenia [Unknown]
  - Vaginal haemorrhage [Unknown]
  - Septic shock [Unknown]
  - Endometrial atrophy [Unknown]
